FAERS Safety Report 7511206-7 (Version None)
Quarter: 2011Q2

REPORT INFORMATION
  Report Type: 
  Country: None (occurrence: None)
  Receive Date: 20110531
  Receipt Date: 20110519
  Transmission Date: 20111010
  Serious: Yes (Hospitalization, Other)
  Sender: FDA-Public Use
  Company Number: PHFR2010GB06126

PATIENT
  Sex: Male

DRUGS (4)
  1. SENNA-MINT WAF [Concomitant]
     Route: 048
  2. CLOZARIL [Suspect]
     Route: 065
     Dates: start: 20110401
  3. CLOZARIL [Suspect]
     Indication: SCHIZOPHRENIA, PARANOID TYPE
     Dosage: 500MG/DAY
     Route: 048
     Dates: start: 20070830, end: 20101230
  4. CLOZARIL [Suspect]
     Dosage: 450 MG/DAY
     Route: 048

REACTIONS (18)
  - INFLUENZA LIKE ILLNESS [None]
  - H1N1 INFLUENZA [None]
  - WHITE BLOOD CELL COUNT DECREASED [None]
  - DIARRHOEA [None]
  - CHILLS [None]
  - NASOPHARYNGITIS [None]
  - PYREXIA [None]
  - PAIN [None]
  - HEADACHE [None]
  - NEUTROPENIA [None]
  - MALAISE [None]
  - PLATELET COUNT DECREASED [None]
  - WEIGHT DECREASED [None]
  - SUICIDAL IDEATION [None]
  - INFLUENZA [None]
  - INSOMNIA [None]
  - DEHYDRATION [None]
  - POOR QUALITY SLEEP [None]
